FAERS Safety Report 12140096 (Version 1)
Quarter: 2016Q1

REPORT INFORMATION
  Report Type: Spontaneous
  Country: US (occurrence: None)
  Receive Date: 20160302
  Receipt Date: 20160302
  Transmission Date: 20160526
  Serious: No
  Sender: FDA-Public Use
  Company Number: None

PATIENT
  Age: 60 Year
  Sex: Female
  Weight: 109.32 kg

DRUGS (2)
  1. BRILINTA [Suspect]
     Active Substance: TICAGRELOR
     Indication: STENT PLACEMENT
     Route: 048
     Dates: start: 20150807
  2. BRILINTA [Suspect]
     Active Substance: TICAGRELOR
     Indication: MYOCARDIAL INFARCTION
     Route: 048
     Dates: start: 20150807

REACTIONS (9)
  - Vascular stent thrombosis [None]
  - Wound [None]
  - Cardiac failure chronic [None]
  - Chest pain [None]
  - Hypokalaemia [None]
  - Electrocardiogram ST segment elevation [None]
  - Cardiac valve disease [None]
  - Abdominal pain lower [None]
  - Hypomagnesaemia [None]

NARRATIVE: CASE EVENT DATE: 20150819
